FAERS Safety Report 4476833-2 (Version None)
Quarter: 2004Q4

REPORT INFORMATION
  Report Type: 
  Country: None (occurrence: None)
  Receive Date: 20041013
  Receipt Date: 20041001
  Transmission Date: 20050328
  Serious: Yes (Death, Hospitalization)
  Sender: FDA-Public Use
  Company Number: HQWYE707612OCT04

PATIENT
  Age: 16 Year

DRUGS (3)
  1. ADVIL [Suspect]
     Dosage: ORAL
     Route: 048
  2. ACETAMINOPHEN (ACETMINOPHEN) [Suspect]
     Dosage: ORAL
     Route: 048
  3. ACETAMINOPHEN/HYDROCODONE (ACETMINOPHEN/HYDROCODONE) [Suspect]
     Dosage: ORAL
     Route: 048

REACTIONS (12)
  - ALANINE AMINOTRANSFERASE INCREASED [None]
  - ASPARTATE AMINOTRANSFERASE INCREASED [None]
  - BLOOD BICARBONATE DECREASED [None]
  - BLOOD METHAEMOGLOBIN PRESENT [None]
  - BLOOD PH DECREASED [None]
  - BLOOD PRESSURE DECREASED [None]
  - BODY TEMPERATURE DECREASED [None]
  - CHEMICAL ABUSER [None]
  - COMPLETED SUICIDE [None]
  - DRUG SCREEN POSITIVE [None]
  - HEART RATE INCREASED [None]
  - INTENTIONAL OVERDOSE [None]
